FAERS Safety Report 5902791-7 (Version None)
Quarter: 2008Q3

REPORT INFORMATION
  Report Type: 
  Country: None (occurrence: None)
  Receive Date: 20080929
  Receipt Date: 20080929
  Transmission Date: 20090109
  Serious: No
  Sender: FDA-Public Use
  Company Number: None

PATIENT
  Age: 21 Year
  Sex: Female
  Weight: 64.4108 kg

DRUGS (1)
  1. MIRENA [Suspect]
     Indication: CONTRACEPTION
     Dosage: 1 TIME INSERTION
     Dates: start: 20080926, end: 20080926

REACTIONS (8)
  - ABDOMINAL PAIN UPPER [None]
  - FALL [None]
  - HEARING IMPAIRED [None]
  - HYPERHIDROSIS [None]
  - IUCD COMPLICATION [None]
  - NAUSEA [None]
  - SYNCOPE [None]
  - XANTHOPSIA [None]
